FAERS Safety Report 6217674-5 (Version None)
Quarter: 2009Q2

REPORT INFORMATION
  Report Type: 
  Country: None (occurrence: None)
  Receive Date: 20090603
  Receipt Date: 20090603
  Transmission Date: 20091009
  Serious: Yes (Other)
  Sender: FDA-Public Use
  Company Number: None

PATIENT
  Age: 48 Year
  Sex: Female
  Weight: 43.9989 kg

DRUGS (2)
  1. LEVETIRACETAM [Suspect]
     Indication: CONVULSION
     Dosage: 1000 MG 2X DAY
     Dates: start: 20090227
  2. LEVETIRACETAM [Suspect]
     Indication: CONVULSION
     Dosage: 1000 MG 2X DAY
     Dates: start: 20090228

REACTIONS (1)
  - CONVULSION [None]
